FAERS Safety Report 13999475 (Version 1)
Quarter: 2017Q3

REPORT INFORMATION
  Report Type: Other
  Country: FR (occurrence: FR)
  Receive Date: 20170922
  Receipt Date: 20170922
  Transmission Date: 20171128
  Serious: Yes (Other)
  Sender: FDA-Public Use
  Company Number: FR-APOTEX-2017AP018643

PATIENT
  Age: 61 Year
  Sex: Male

DRUGS (1)
  1. PAROXETINE BIOGARAN FILM-COATED TABLET [Suspect]
     Active Substance: PAROXETINE HYDROCHLORIDE
     Indication: DEPRESSION
     Dosage: 20 MG, 1D
     Route: 048
     Dates: start: 20120901, end: 20160901

REACTIONS (2)
  - Dyspnoea exertional [Recovered/Resolved]
  - Hypoxia [Recovered/Resolved]

NARRATIVE: CASE EVENT DATE: 2016
